FAERS Safety Report 15938334 (Version 1)
Quarter: 2019Q1

REPORT INFORMATION
  Report Type: Spontaneous
  Country: US (occurrence: US)
  Receive Date: 20190208
  Receipt Date: 20190208
  Transmission Date: 20190417
  Serious: Yes (Other)
  Sender: FDA-Public Use
  Company Number: None

PATIENT
  Age: 18 Year
  Sex: Female
  Weight: 58.5 kg

DRUGS (3)
  1. NAPROXEN. [Concomitant]
     Active Substance: NAPROXEN
  2. NIGHTTIME SLEEP AID (DIPHENHYDRAMINE HYDROCHLORIDE) [Suspect]
     Active Substance: DIPHENHYDRAMINE HYDROCHLORIDE
     Indication: INSOMNIA
     Dosage: ?          QUANTITY:3 CAPSULE(S);?
     Route: 048
  3. WOMEN^S 1 A DAY [Concomitant]

REACTIONS (2)
  - Dyskinesia [None]
  - Mania [None]

NARRATIVE: CASE EVENT DATE: 20190110
